FAERS Safety Report 7810030-5 (Version None)
Quarter: 2011Q4

REPORT INFORMATION
  Report Type: 
  Country: None (occurrence: None)
  Receive Date: 20111012
  Receipt Date: 20110708
  Transmission Date: 20120403
  Serious: No
  Sender: FDA-Public Use
  Company Number: US-GLAXOSMITHKLINE-A0936052A

PATIENT
  Sex: Male

DRUGS (4)
  1. NITROFURANTOIN [Concomitant]
  2. JALYN [Suspect]
     Indication: PRODUCT USED FOR UNKNOWN INDICATION
     Route: 048
  3. VITAMIN D [Concomitant]
  4. CIPROFLOXACIN [Concomitant]

REACTIONS (2)
  - RHINORRHOEA [None]
  - PAINFUL ERECTION [None]
